FAERS Safety Report 15299186 (Version 2)
Quarter: 2018Q3

REPORT INFORMATION
  Report Type: Spontaneous
  Country: US (occurrence: US)
  Receive Date: 20180821
  Receipt Date: 20180914
  Transmission Date: 20181010
  Serious: No
  Sender: FDA-Public Use
  Company Number: US-ELI_LILLY_AND_COMPANY-US201808007628

PATIENT
  Age: 73 Year
  Sex: Female

DRUGS (3)
  1. ABEMACICLIB 200MG [Suspect]
     Active Substance: ABEMACICLIB
     Dosage: 150 MG, UNKNOWN
     Route: 065
  2. ABEMACICLIB 200MG [Suspect]
     Active Substance: ABEMACICLIB
     Indication: BREAST CANCER FEMALE
     Dosage: 200 MG, UNKNOWN
     Route: 065
  3. ABEMACICLIB 200MG [Suspect]
     Active Substance: ABEMACICLIB
     Dosage: 150 MG, UNKNOWN
     Route: 065

REACTIONS (2)
  - Drug dose omission [Unknown]
  - Diarrhoea [Unknown]
